FAERS Safety Report 6988536-0 (Version None)
Quarter: 2010Q3

REPORT INFORMATION
  Report Type: 
  Country: None (occurrence: None)
  Receive Date: 20100916
  Receipt Date: 20100907
  Transmission Date: 20110219
  Serious: Yes (Hospitalization)
  Sender: FDA-Public Use
  Company Number: US-PFIZER INC-2010107076

PATIENT
  Sex: Male

DRUGS (3)
  1. SUNITINIB MALATE [Suspect]
     Indication: RENAL CELL CARCINOMA
     Dosage: 50 MG, UNK
     Route: 048
     Dates: start: 20100310, end: 20100817
  2. ALLOPURINOL [Concomitant]
     Dosage: UNK
     Dates: start: 20040116
  3. LISINOPRIL [Concomitant]
     Dosage: UNK
     Dates: start: 20080328

REACTIONS (1)
  - PNEUMATOSIS INTESTINALIS [None]
